FAERS Safety Report 18612054 (Version 1)
Quarter: 2020Q4

REPORT INFORMATION
  Report Type: Report from Study
  Country: None (occurrence: US)
  Receive Date: 20201214
  Receipt Date: 20201214
  Transmission Date: 20210114
  Serious: Yes (Hospitalization)
  Sender: FDA-Public Use
  Company Number: US-ABBVIE-20K-163-3687257-00

PATIENT
  Sex: Male

DRUGS (2)
  1. DUOPA [Suspect]
     Active Substance: CARBIDOPA\LEVODOPA
  2. DUOPA [Suspect]
     Active Substance: CARBIDOPA\LEVODOPA
     Indication: PRODUCT USED FOR UNKNOWN INDICATION
     Route: 050
     Dates: start: 2020

REACTIONS (10)
  - Urinary tract infection [Unknown]
  - Hypotension [Unknown]
  - Feeling hot [Unknown]
  - Atrial fibrillation [Unknown]
  - Anal incontinence [Unknown]
  - Nausea [Unknown]
  - Vomiting [Unknown]
  - Cardiac disorder [Unknown]
  - Anxiety [Unknown]
  - Gastritis [Unknown]

NARRATIVE: CASE EVENT DATE: 2020
